FAERS Safety Report 6626496-2 (Version None)
Quarter: 2010Q1

REPORT INFORMATION
  Report Type: 
  Country: None (occurrence: None)
  Receive Date: 20100309
  Receipt Date: 20100309
  Transmission Date: 20100710
  Serious: Yes (Other)
  Sender: FDA-Public Use
  Company Number: None

PATIENT
  Age: 18 Year
  Sex: Male
  Weight: 63.5036 kg

DRUGS (1)
  1. LEVAQUIN [Suspect]
     Indication: PROSTATITIS
     Dosage: 500MG 1 PO
     Route: 048
     Dates: start: 20090731, end: 20090731

REACTIONS (16)
  - ABDOMINAL PAIN [None]
  - AGITATION [None]
  - AMNESIA [None]
  - COGNITIVE DISORDER [None]
  - DECREASED APPETITE [None]
  - DEPERSONALISATION [None]
  - FEELING ABNORMAL [None]
  - HEADACHE [None]
  - HYPOACUSIS [None]
  - HYPOAESTHESIA [None]
  - INSOMNIA [None]
  - MUSCLE CONTRACTIONS INVOLUNTARY [None]
  - PAIN [None]
  - PALPITATIONS [None]
  - TINNITUS [None]
  - WEIGHT DECREASED [None]
